FAERS Safety Report 10895755 (Version 1)
Quarter: 2015Q1

REPORT INFORMATION
  Report Type: Spontaneous
  Country: US (occurrence: US)
  Receive Date: 20150307
  Receipt Date: 20150307
  Transmission Date: 20150721
  Serious: Yes (Other)
  Sender: FDA-Public Use
  Company Number: US-ACCORD-029127

PATIENT
  Age: 54 Year
  Sex: Female

DRUGS (2)
  1. TRASTUZUMAB [Concomitant]
     Active Substance: TRASTUZUMAB
     Indication: BREAST CANCER
     Dosage: EVERY 3 WEEKS
  2. PACLITAXEL/PACLITAXEL LIPOSOME [Suspect]
     Active Substance: PACLITAXEL
     Indication: BREAST CANCER
     Dosage: EEEKLY PACLITAXEL (80 MG/M2) TO COMPLETE 12 CYCLES.

REACTIONS (3)
  - Neuropathy peripheral [Unknown]
  - Nail pigmentation [None]
  - Onycholysis [Recovering/Resolving]
